FAERS Safety Report 8333536-1 (Version None)
Quarter: 2012Q1

REPORT INFORMATION
  Report Type: 
  Country: None (occurrence: None)
  Receive Date: 20120328
  Receipt Date: 20110216
  Transmission Date: 20120608
  Serious: Yes (Other)
  Sender: FDA-Public Use
  Company Number: PHHY2011US12971

PATIENT

DRUGS (1)
  1. VALTURNA [Suspect]
     Dosage: 150/300 MG

REACTIONS (1)
  - RENAL IMPAIRMENT [None]
